FAERS Safety Report 4631872-3 (Version None)
Quarter: 2005Q2

REPORT INFORMATION
  Report Type: 
  Country: None (occurrence: None)
  Receive Date: 20050328
  Receipt Date: 20050125
  Transmission Date: 20051028
  Serious: Yes (Other)
  Sender: FDA-Public Use
  Company Number: 2004-0007831

PATIENT
  Age: 35 Year
  Sex: Male
  Weight: 63.5036 kg

DRUGS (9)
  1. TRUVADA [Suspect]
     Indication: HIV INFECTION
     Dosage: 1 DOSAGE FORMS, 1 IN 1 D, ORAL
     Route: 048
     Dates: start: 20041021, end: 20041101
  2. TENOFOVIR DISOPROXIL FUMARATE [Suspect]
     Indication: HIV INFECTION
     Dosage: 300 MG, 1 IN 1 D, ORAL
     Route: 048
     Dates: start: 20041108, end: 20041110
  3. ATAZANAVIR (ATAZANAVIR) [Suspect]
     Indication: HIV INFECTION
     Dosage: 300 MG, 1 IN 1 D, ORAL
     Route: 048
     Dates: start: 20041021, end: 20041101
  4. DDI (DIDANOSINE) [Concomitant]
  5. RITONAVIR (RITONAVIR) [Concomitant]
  6. BACTRIM [Concomitant]
  7. CITALOPRAM (CITALOPRAM) [Concomitant]
  8. VALPROIC ACID [Concomitant]
  9. TRAZODONE (TRAZODONE) [Concomitant]

REACTIONS (2)
  - DRUG HYPERSENSITIVITY [None]
  - HYPERBILIRUBINAEMIA [None]
